FAERS Safety Report 7298258-7 (Version None)
Quarter: 2011Q1

REPORT INFORMATION
  Report Type: 
  Country: None (occurrence: None)
  Receive Date: 20110217
  Receipt Date: 20100126
  Transmission Date: 20110831
  Serious: No
  Sender: FDA-Public Use
  Company Number: US-PFIZER INC-2010012254

PATIENT
  Sex: Female
  Weight: 73.9 kg

DRUGS (9)
  1. XALATAN [Suspect]
     Indication: OPEN ANGLE GLAUCOMA
     Dosage: 2 GTT, 1X/DAY
     Route: 047
     Dates: start: 20080101
  2. XALATAN [Suspect]
     Indication: PROPHYLAXIS
  3. OMEGA 3-6-9 [Concomitant]
     Dosage: 200 MG, 1X/DAY
  4. GARLIC [Suspect]
     Dosage: 1000 MG, 1X/DAY
  5. ZESTRIL [Concomitant]
     Indication: BLOOD PRESSURE ABNORMAL
     Dosage: DAILY
  6. TRIAMTERENE AND HYDROCHLOROTHIAZIDE [Concomitant]
     Indication: BLOOD PRESSURE ABNORMAL
     Dosage: DAILY
  7. OPCON-A [Suspect]
     Indication: OCULAR HYPERAEMIA
     Dosage: UNK
  8. ESTER-C [Concomitant]
     Dosage: UNK
  9. VITAMIN E [Concomitant]
     Dosage: 400 MG, 1X/DAY

REACTIONS (2)
  - OCULAR HYPERAEMIA [None]
  - EYE IRRITATION [None]
